FAERS Safety Report 6528124-3 (Version None)
Quarter: 2009Q4

REPORT INFORMATION
  Report Type: 
  Country: None (occurrence: None)
  Receive Date: 20091230
  Receipt Date: 20091224
  Transmission Date: 20100525
  Serious: Yes (Life-Threatening)
  Sender: FDA-Public Use
  Company Number: 2009JP006649

PATIENT
  Age: 63 Year
  Sex: Female
  Weight: 43.8 kg

DRUGS (6)
  1. FUNGUARD (MICAFUNGIN) INJECTION [Suspect]
     Indication: FUNGAL INFECTION
     Dosage: 300 MG, UID/QD, IV DRIP
     Route: 041
     Dates: start: 20091104, end: 20091104
  2. GASTER (FAMOTIDINE) ORODISPERSIBLE CR TABLET [Concomitant]
  3. PREDNISOLONE [Concomitant]
  4. VANCOMIN (MECOBALAMIN) TABLET [Concomitant]
  5. D ALFA (ALFACALCIDOL) TABLET [Concomitant]
  6. MEROPEN (MEROPENEM) INJECTION [Concomitant]

REACTIONS (4)
  - ACUTE RESPIRATORY DISTRESS SYNDROME [None]
  - ALTERED STATE OF CONSCIOUSNESS [None]
  - COMPUTERISED TOMOGRAM THORAX ABNORMAL [None]
  - SHOCK [None]
